FAERS Safety Report 9717378 (Version 1)
Quarter: 2013Q4

REPORT INFORMATION
  Report Type: Spontaneous
  Country: US (occurrence: US)
  Receive Date: 20131127
  Receipt Date: 20131127
  Transmission Date: 20140711
  Serious: No
  Sender: FDA-Public Use
  Company Number: US-GILEAD-2008-0019555

PATIENT
  Sex: Male
  Weight: 124.74 kg

DRUGS (14)
  1. LETAIRIS [Suspect]
     Indication: PULMONARY ARTERIAL HYPERTENSION
     Route: 048
     Dates: start: 20081209
  2. COUMADIN [Concomitant]
  3. XOPENEX [Concomitant]
  4. PREDNISONE [Concomitant]
  5. ALDACTONE [Concomitant]
  6. LASIX [Concomitant]
  7. PLAQUENIL [Concomitant]
  8. CELEBREX [Concomitant]
  9. PLAVIX [Concomitant]
  10. ZOLOFT [Concomitant]
  11. AMBIEN [Concomitant]
  12. NEURONTIN [Concomitant]
  13. NEXIUM [Concomitant]
  14. POTASSIUM [Concomitant]

REACTIONS (1)
  - Headache [None]
